FAERS Safety Report 20734446 (Version 1)
Quarter: 2022Q2

REPORT INFORMATION
  Report Type: Spontaneous
  Country: CN (occurrence: CN)
  Receive Date: 20220421
  Receipt Date: 20220421
  Transmission Date: 20220721
  Serious: Yes (Hospitalization, Other)
  Sender: FDA-Public Use
  Company Number: CN-Accord-261432

PATIENT
  Age: 68 Year
  Sex: Male

DRUGS (6)
  1. TIGECYCLINE [Suspect]
     Active Substance: TIGECYCLINE
     Indication: Pneumonia
     Dosage: LOADING DOSE 200 MG, FOLLOWED BY 100 MG EVERY 12  H INTRAVENOUSLY
     Route: 042
  2. POLYMYXIN B [Concomitant]
     Active Substance: POLYMYXIN B
     Indication: Pneumonia
     Dosage: 50,000 UNITS BY AEROSOL INHALATION EVERY 12 H
     Route: 055
  3. TACROLIMUS [Concomitant]
     Active Substance: TACROLIMUS
     Dosage: 1 MG EVERY 12 H WAS RESUMED
     Route: 048
  4. ENTECAVIR [Concomitant]
     Active Substance: ENTECAVIR
     Dosage: 0.5 MG DAILY
  5. MEROPENEM [Concomitant]
     Active Substance: MEROPENEM
     Indication: Acinetobacter infection
     Dosage: 1  G INTRAVENOUSLY EVERY 8 H
     Route: 042
  6. AMIKACIN [Concomitant]
     Active Substance: AMIKACIN
     Indication: Pseudomonas infection

REACTIONS (1)
  - Cholestatic liver injury [Recovered/Resolved]
